FAERS Safety Report 9664431 (Version 2)
Quarter: 2013Q4

REPORT INFORMATION
  Report Type: Spontaneous
  Country: IT (occurrence: IT)
  Receive Date: 20131101
  Receipt Date: 20131111
  Transmission Date: 20140711
  Serious: Yes (Other)
  Sender: FDA-Public Use
  Company Number: IT-RANBAXY-2013RR-74823

PATIENT
  Age: 70 Year
  Sex: Female

DRUGS (1)
  1. AMOXICILLIN/CLAVULANIC ACID [Suspect]
     Indication: PROPHYLAXIS
     Dosage: 1 DF, COMPLETE
     Route: 048
     Dates: start: 20131007, end: 20131007

REACTIONS (2)
  - Lip oedema [Recovering/Resolving]
  - Rash [Recovering/Resolving]
